FAERS Safety Report 8197643-9 (Version None)
Quarter: 2012Q1

REPORT INFORMATION
  Report Type: 
  Country: None (occurrence: None)
  Receive Date: 20120307
  Receipt Date: 20120224
  Transmission Date: 20120608
  Serious: Yes (Other)
  Sender: FDA-Public Use
  Company Number: 2009AL002553

PATIENT
  Age: 76 Year
  Sex: Male

DRUGS (4)
  1. CRESTOR [Concomitant]
  2. ASPIRIN [Concomitant]
  3. DIGOXIN [Suspect]
     Indication: PRODUCT USED FOR UNKNOWN INDICATION
     Dosage: 250 MCG;QD;PO
     Route: 048
     Dates: start: 20051229, end: 20080329
  4. COUMADIN [Concomitant]

REACTIONS (7)
  - MULTIPLE INJURIES [None]
  - UNEVALUABLE EVENT [None]
  - SLEEP APNOEA SYNDROME [None]
  - HYPERLIPIDAEMIA [None]
  - ECONOMIC PROBLEM [None]
  - PERIODIC LIMB MOVEMENT DISORDER [None]
  - ATRIAL FIBRILLATION [None]
